FAERS Safety Report 12680534 (Version 2)
Quarter: 2016Q3

REPORT INFORMATION
  Report Type: Spontaneous
  Country: ES (occurrence: ES)
  Receive Date: 20160824
  Receipt Date: 20160921
  Transmission Date: 20161109
  Serious: Yes (Hospitalization)
  Sender: FDA-Public Use
  Company Number: ES-ASTRAZENECA-2016SE88628

PATIENT
  Age: 26971 Day
  Sex: Female

DRUGS (11)
  1. FENOFIBRATE. [Concomitant]
     Active Substance: FENOFIBRATE
     Route: 048
  2. AMILORIDE [Concomitant]
     Active Substance: AMILORIDE
     Route: 048
  3. PREGABALIN. [Concomitant]
     Active Substance: PREGABALIN
     Route: 048
  4. METFORMIN [Concomitant]
     Active Substance: METFORMIN HYDROCHLORIDE
     Route: 048
  5. BISOPROLOL [Suspect]
     Active Substance: BISOPROLOL
     Route: 065
     Dates: end: 201511
  6. INSULIN [Concomitant]
     Active Substance: INSULIN NOS
     Route: 058
  7. HYDROCHLOROTHIAZID [Concomitant]
     Active Substance: HYDROCHLOROTHIAZIDE
     Route: 048
  8. ACETYLSALICYLIC ACID [Suspect]
     Active Substance: ASPIRIN
     Indication: THROMBOSIS PROPHYLAXIS
     Dosage: NON AZ PRODUCT
     Route: 048
     Dates: start: 201505, end: 20150528
  9. TICAGRELOR [Suspect]
     Active Substance: TICAGRELOR
     Indication: THROMBOSIS PROPHYLAXIS
     Route: 048
     Dates: start: 20150527
  10. CANDESARTAN [Concomitant]
     Active Substance: CANDESARTAN
     Route: 048
  11. ROSUVASTATIN. [Concomitant]
     Active Substance: ROSUVASTATIN
     Route: 048

REACTIONS (1)
  - Atrioventricular block second degree [Recovered/Resolved]

NARRATIVE: CASE EVENT DATE: 20151105
